FAERS Safety Report 9911612 (Version 1)
Quarter: 2014Q1

REPORT INFORMATION
  Report Type: Report from Study
  Country: BR (occurrence: BR)
  Receive Date: 20140219
  Receipt Date: 20140219
  Transmission Date: 20141002
  Serious: Yes (Hospitalization, Other)
  Sender: FDA-Public Use
  Company Number: PHHY2014BR018857

PATIENT
  Age: 63 Year
  Sex: 0
  Weight: 64 kg

DRUGS (2)
  1. SANDOSTATIN LAR [Suspect]
     Indication: NEOPLASM PROGRESSION
     Dosage: UNK UKN, ONCE A MONTH
     Dates: end: 201306
  2. SANDOSTATIN LAR [Suspect]
     Indication: OFF LABEL USE

REACTIONS (5)
  - Coma [Recovering/Resolving]
  - Renal neoplasm [Unknown]
  - Hepatic neoplasm [Unknown]
  - Bladder neoplasm [Unknown]
  - Pain [Unknown]
